FAERS Safety Report 20933522 (Version 1)
Quarter: 2022Q2

REPORT INFORMATION
  Report Type: Spontaneous
  Country: NL (occurrence: NL)
  Receive Date: 20220608
  Receipt Date: 20220608
  Transmission Date: 20220721
  Serious: Yes (Other)
  Sender: FDA-Public Use
  Company Number: NL-SUN PHARMACEUTICAL INDUSTRIES LTD-2022R1-337444

PATIENT
  Age: 10 Year
  Sex: Female

DRUGS (6)
  1. DOXORUBICIN [Suspect]
     Active Substance: DOXORUBICIN
     Indication: Chemotherapy
     Dosage: UNK/ 8 CYCLES
     Route: 065
  2. CISPLATIN [Suspect]
     Active Substance: CISPLATIN
     Indication: Chemotherapy
     Dosage: UNK/ 8 CYCLES
  3. ETOPOSIDE [Suspect]
     Active Substance: ETOPOSIDE
     Indication: Chemotherapy
     Dosage: UNK/ 8 CYCLES
  4. MITOTANE [Suspect]
     Active Substance: MITOTANE
     Indication: Chemotherapy
     Dosage: UNK/ 8 CYCLES
  5. HYDROCORTISONE [Concomitant]
     Active Substance: HYDROCORTISONE
     Indication: Supplementation therapy
     Dosage: UNK
  6. FLUDROCORTISONE [Concomitant]
     Active Substance: FLUDROCORTISONE
     Indication: Supplementation therapy
     Dosage: UNK

REACTIONS (9)
  - Hypocalcaemia [Unknown]
  - Anaemia [Unknown]
  - Memory impairment [Recovering/Resolving]
  - Cushing^s syndrome [Unknown]
  - Neutropenia [Unknown]
  - Mouth ulceration [Unknown]
  - Cognitive disorder [Recovering/Resolving]
  - Metastasis [Recovered/Resolved]
  - Hypothyroidism [Unknown]
